FAERS Safety Report 17878896 (Version 6)
Quarter: 2022Q3

REPORT INFORMATION
  Report Type: Spontaneous
  Country: US (occurrence: US)
  Receive Date: 20200610
  Receipt Date: 20220719
  Transmission Date: 20221027
  Serious: Yes (Hospitalization)
  Sender: FDA-Public Use
  Company Number: US-KARYOPHARM-2020KPT000543

PATIENT

DRUGS (14)
  1. XPOVIO [Suspect]
     Active Substance: SELINEXOR
     Indication: Plasma cell myeloma
     Dosage: 80 MG, 2X/WEEK
     Route: 048
     Dates: start: 20200504, end: 20200529
  2. XPOVIO [Suspect]
     Active Substance: SELINEXOR
     Dosage: 60 MG, WEEKLY
     Route: 048
     Dates: start: 20200617, end: 20200722
  3. MELATONIN [Concomitant]
     Active Substance: MELATONIN
     Indication: Insomnia
     Dosage: 3 MG, PRN
     Route: 048
  4. TEA TREE OIL [Concomitant]
     Active Substance: TEA TREE OIL
     Indication: Insomnia
  5. SIMPLY SLEEP [Concomitant]
     Active Substance: DIPHENHYDRAMINE HYDROCHLORIDE
     Indication: Insomnia
  6. DEXAMETHASONE [Concomitant]
     Active Substance: DEXAMETHASONE
     Indication: Plasma cell myeloma
     Dosage: 20 MG, 2X/WEEK
     Route: 048
     Dates: start: 20200528
  7. DEXAMETHASONE [Concomitant]
     Active Substance: DEXAMETHASONE
     Dosage: 20 MG, WEEKLY
     Route: 048
     Dates: end: 20200716
  8. COMPAZINE [Concomitant]
     Active Substance: PROCHLORPERAZINE MALEATE
     Indication: Nausea
     Dosage: 10 MG, Q6H PRN NAUSEA AND VOMITING
     Route: 048
     Dates: start: 20200429, end: 20201117
  9. COMPAZINE [Concomitant]
     Active Substance: PROCHLORPERAZINE MALEATE
     Indication: Vomiting
  10. BACTRIM [Concomitant]
     Active Substance: SULFAMETHOXAZOLE\TRIMETHOPRIM
     Indication: Antifungal prophylaxis
     Dosage: 400-80 MG, 2X/WEEK
     Route: 048
     Dates: start: 20200325, end: 20200902
  11. DOXYCYCLINE [Concomitant]
     Active Substance: DOXYCYCLINE
     Indication: Respiratory tract infection
     Dosage: 100 MG, BID PRN
     Route: 048
     Dates: start: 20200226, end: 20200715
  12. ACYCLOVIR [Concomitant]
     Active Substance: ACYCLOVIR
     Dosage: 400 MG, QD
     Route: 048
     Dates: start: 20200129, end: 20200902
  13. ONDANSETRON [Concomitant]
     Active Substance: ONDANSETRON
     Indication: Nausea
     Dosage: 8 MG, PRN FOR NAUSEA AND VOMITING IF UNRELIEVED BY PROCHLORPERAZINE
     Route: 048
     Dates: start: 20200429
  14. ONDANSETRON [Concomitant]
     Active Substance: ONDANSETRON
     Indication: Vomiting
     Dosage: 16 MG, QD, TAKE 30 MINUTES PRIOR TO SELINEXOR ON DAY OF SELINEXOR ADMINISTRATION
     Route: 048
     Dates: start: 20200508, end: 20210310

REACTIONS (18)
  - Pancytopenia [Unknown]
  - Nausea [Recovered/Resolved]
  - Dizziness [Recovered/Resolved]
  - Vomiting [Recovered/Resolved]
  - Dehydration [Recovered/Resolved]
  - Pneumonia [Recovered/Resolved]
  - Insomnia [Recovering/Resolving]
  - Nocturia [Unknown]
  - Affect lability [Not Recovered/Not Resolved]
  - Dyspepsia [Unknown]
  - Visual impairment [Recovered/Resolved]
  - Therapeutic product effect decreased [Unknown]
  - Plasma cell myeloma [Unknown]
  - Disturbance in attention [Unknown]
  - Chills [Unknown]
  - Decreased appetite [Recovered/Resolved]
  - Fatigue [Recovered/Resolved]
  - Constipation [Unknown]

NARRATIVE: CASE EVENT DATE: 20200501
